FAERS Safety Report 8210136-5 (Version None)
Quarter: 2012Q1

REPORT INFORMATION
  Report Type: 
  Country: None (occurrence: None)
  Receive Date: 20120314
  Receipt Date: 20111219
  Transmission Date: 20120608
  Serious: No
  Sender: FDA-Public Use
  Company Number: US-ASTRAZENECA-2011SE77087

PATIENT
  Age: 74 Year
  Sex: Male

DRUGS (2)
  1. TOPROL-XL [Suspect]
     Route: 048
  2. NEXIUM [Suspect]
     Route: 048

REACTIONS (1)
  - MALAISE [None]
